FAERS Safety Report 14247616 (Version 1)
Quarter: 2017Q4

REPORT INFORMATION
  Report Type: Spontaneous
  Country: CA (occurrence: CA)
  Receive Date: 20171204
  Receipt Date: 20171204
  Transmission Date: 20180321
  Serious: Yes (Other)
  Sender: FDA-Public Use
  Company Number: CA-HIKMA PHARMACEUTICALS CO. LTD-2017CA016100

PATIENT

DRUGS (2)
  1. INFLECTRA [Suspect]
     Active Substance: INFLIXIMAB-DYYB
     Indication: CROHN^S DISEASE
     Dosage: 300 MG, CYCLIC (EVERY 0, 2, 6 WEEKS THEN EVERY 8 WEEKS)
     Route: 065
     Dates: start: 20171110
  2. INFLECTRA [Suspect]
     Active Substance: INFLIXIMAB-DYYB
     Dosage: 300 UNK, EVERY 8 WEEKS
     Route: 042

REACTIONS (9)
  - Influenza like illness [Unknown]
  - Head discomfort [Unknown]
  - Ecchymosis [Unknown]
  - Respiratory distress [Unknown]
  - Nausea [Unknown]
  - Headache [Unknown]
  - Infusion site pruritus [Unknown]
  - Vertigo [Unknown]
  - Fatigue [Unknown]

NARRATIVE: CASE EVENT DATE: 201711
